FAERS Safety Report 7121845-3 (Version None)
Quarter: 2010Q4

REPORT INFORMATION
  Report Type: 
  Country: None (occurrence: None)
  Receive Date: 20101124
  Receipt Date: 20101117
  Transmission Date: 20110411
  Serious: Yes (Hospitalization, Other)
  Sender: FDA-Public Use
  Company Number: CA-PURDUE-CAN-2010-0001593

PATIENT
  Age: 78 Year
  Sex: Male
  Weight: 75.692 kg

DRUGS (22)
  1. DILAUDID [Suspect]
     Indication: PAIN
     Dosage: 2 MG, Q4H PRN
     Route: 048
     Dates: start: 20100720, end: 20101017
  2. SUNITINIB MALATE [Suspect]
     Indication: PROSTATE CANCER
     Dosage: 37.5 MG, DAILY
     Route: 048
     Dates: start: 20100705, end: 20100927
  3. PREDNISONE [Suspect]
     Indication: PROSTATE CANCER
     Dosage: 5 MG, BID
     Route: 048
     Dates: start: 20100705, end: 20100926
  4. DALTEPARIN                         /01708302/ [Concomitant]
     Indication: PULMONARY EMBOLISM
     Dosage: UNK
     Dates: start: 20101011
  5. QUETIAPINE [Concomitant]
     Indication: DEPRESSION
     Dosage: UNK
     Dates: start: 20101011
  6. QUETIAPINE [Concomitant]
     Indication: MOOD ALTERED
  7. SLOW-K [Concomitant]
     Indication: HYPOKALAEMIA
     Dosage: UNK
     Dates: start: 20101007
  8. POTASSIUM CITRATE [Concomitant]
     Indication: HYPOKALAEMIA
     Dosage: UNK
     Dates: start: 20101011
  9. LACTULOSE [Concomitant]
     Indication: CONSTIPATION
     Dosage: UNK
     Dates: start: 20101007
  10. PHOSPHATE SANDOZ [Concomitant]
     Indication: HYPOPHOSPHATAEMIA
     Dosage: UNK
     Dates: start: 20101007
  11. BENZYDAMINE [Concomitant]
     Indication: STOMATITIS
     Dosage: UNK
     Dates: start: 20101007
  12. BIMATOPROST [Concomitant]
     Indication: GLAUCOMA
     Dosage: UNK
     Dates: start: 20040101
  13. COSOPT [Concomitant]
     Indication: GLAUCOMA
     Dosage: UNK
     Dates: start: 20040101
  14. METHYLCELLULOSE [Concomitant]
     Indication: DRY EYE
     Dosage: UNK
     Dates: start: 20101006, end: 20101016
  15. BISACODYL [Concomitant]
     Indication: CONSTIPATION
     Dosage: UNK
     Dates: start: 20101011, end: 20101016
  16. DIMENHYDRINATE [Concomitant]
     Indication: VOMITING
     Dosage: UNK
     Dates: start: 20101008, end: 20101008
  17. DOCUSATE SODIUM [Concomitant]
     Indication: CONSTIPATION
     Dosage: UNK
     Dates: start: 20100719
  18. DOMPERIDONE [Concomitant]
     Indication: GASTROOESOPHAGEAL REFLUX DISEASE
     Dosage: UNK
     Dates: start: 20101007, end: 20101016
  19. MAALOX                             /00082501/ [Concomitant]
     Indication: GASTROOESOPHAGEAL REFLUX DISEASE
     Dosage: UNK
     Dates: start: 20101011, end: 20101016
  20. PANTOPRAZOL                        /01263202/ [Concomitant]
     Indication: GASTROOESOPHAGEAL REFLUX DISEASE
     Dosage: UNK
     Dates: start: 20100818
  21. NYSTATIN [Concomitant]
     Indication: STOMATITIS
     Dosage: UNK
     Dates: start: 20101006, end: 20101016
  22. LIDOCAINE                          /00033402/ [Concomitant]
     Indication: STOMATITIS
     Dosage: UNK
     Dates: start: 20101008, end: 20101016

REACTIONS (3)
  - CONSTIPATION [None]
  - INTESTINAL OBSTRUCTION [None]
  - VOMITING [None]
